FAERS Safety Report 6118232-3 (Version None)
Quarter: 2009Q1

REPORT INFORMATION
  Report Type: 
  Country: None (occurrence: None)
  Receive Date: 20090314
  Receipt Date: 20090211
  Transmission Date: 20090719
  Serious: No
  Sender: FDA-Public Use
  Company Number: US-ABBOTT-09P-163-0503239-00

PATIENT
  Sex: Male
  Weight: 93.07 kg

DRUGS (1)
  1. HUMIRA [Suspect]
     Indication: CROHN'S DISEASE
     Dosage: 160MG WITH LOADING DOSE, 80MG WITH 2ND DOSE
     Route: 058
     Dates: start: 20090130

REACTIONS (3)
  - INJECTION SITE EXTRAVASATION [None]
  - INJECTION SITE IRRITATION [None]
  - INJECTION SITE PAIN [None]
